FAERS Safety Report 13572102 (Version 2)
Quarter: 2017Q2

REPORT INFORMATION
  Report Type: Report from Study
  Country: US (occurrence: US)
  Receive Date: 20170523
  Receipt Date: 20170607
  Transmission Date: 20170830
  Serious: No
  Sender: FDA-Public Use
  Company Number: US-BIOGEN-2017BI00404980

PATIENT
  Sex: Female

DRUGS (21)
  1. BUPROPION. [Concomitant]
     Active Substance: BUPROPION
     Indication: PRODUCT USED FOR UNKNOWN INDICATION
     Route: 065
  2. TIZANIDINE. [Concomitant]
     Active Substance: TIZANIDINE
     Indication: MUSCLE SPASMS
     Route: 065
  3. ALPRAZOLAM. [Concomitant]
     Active Substance: ALPRAZOLAM
     Indication: PRODUCT USED FOR UNKNOWN INDICATION
     Route: 048
  4. VITAMIN B12 [Concomitant]
     Active Substance: CYANOCOBALAMIN
     Route: 065
  5. VITAMIN D [Concomitant]
     Active Substance: CHOLECALCIFEROL
     Route: 065
  6. VITAMIN B12 [Concomitant]
     Active Substance: CYANOCOBALAMIN
     Indication: PRODUCT USED FOR UNKNOWN INDICATION
     Route: 065
  7. PROZAC [Concomitant]
     Active Substance: FLUOXETINE HYDROCHLORIDE
     Indication: PRODUCT USED FOR UNKNOWN INDICATION
     Route: 065
  8. INH [Concomitant]
     Active Substance: ISONIAZID
     Indication: PROPHYLAXIS
     Route: 048
     Dates: start: 201602
  9. BACLOFEN. [Concomitant]
     Active Substance: BACLOFEN
     Indication: PRODUCT USED FOR UNKNOWN INDICATION
     Route: 048
  10. MECLIZINE [Concomitant]
     Active Substance: MECLIZINE HYDROCHLORIDE
     Indication: PRODUCT USED FOR UNKNOWN INDICATION
     Route: 065
  11. ONDASETRON HCL [Concomitant]
     Active Substance: ONDANSETRON HYDROCHLORIDE
     Indication: PRODUCT USED FOR UNKNOWN INDICATION
     Route: 065
  12. VITAMIN B6 [Concomitant]
     Active Substance: PYRIDOXINE HYDROCHLORIDE
     Indication: PRODUCT USED FOR UNKNOWN INDICATION
     Route: 065
  13. ACYCLOVIR. [Concomitant]
     Active Substance: ACYCLOVIR
     Indication: PRODUCT USED FOR UNKNOWN INDICATION
     Route: 048
  14. OXYCODONE HYDROCHLORIDE. [Concomitant]
     Active Substance: OXYCODONE HYDROCHLORIDE
     Route: 065
  15. VITAMIN D [Concomitant]
     Active Substance: CHOLECALCIFEROL
     Indication: PRODUCT USED FOR UNKNOWN INDICATION
     Route: 065
  16. TYSABRI [Suspect]
     Active Substance: NATALIZUMAB
     Indication: MULTIPLE SCLEROSIS
     Dosage: INFUSED OVER 1 HOUR
     Route: 042
     Dates: start: 20140529, end: 20170306
  17. METHYLPHENIDATE. [Concomitant]
     Active Substance: METHYLPHENIDATE
     Indication: PRODUCT USED FOR UNKNOWN INDICATION
     Route: 065
  18. OXYCODONE HYDROCHLORIDE. [Concomitant]
     Active Substance: OXYCODONE HYDROCHLORIDE
     Indication: PRODUCT USED FOR UNKNOWN INDICATION
     Route: 065
  19. WELLBUTRIN [Concomitant]
     Active Substance: BUPROPION HYDROCHLORIDE
     Indication: PRODUCT USED FOR UNKNOWN INDICATION
     Route: 065
  20. MOBIC [Concomitant]
     Active Substance: MELOXICAM
     Indication: PRODUCT USED FOR UNKNOWN INDICATION
     Route: 065
  21. VITAMIN B6 [Concomitant]
     Active Substance: PYRIDOXINE HYDROCHLORIDE
     Route: 065

REACTIONS (4)
  - Spondylolisthesis [Unknown]
  - Spinal osteoarthritis [Unknown]
  - Lumbar spinal stenosis [Unknown]
  - Mycobacterium tuberculosis complex test positive [Unknown]
